FAERS Safety Report 5240406-4 (Version None)
Quarter: 2007Q1

REPORT INFORMATION
  Report Type: 
  Country: None (occurrence: None)
  Receive Date: 20070219
  Receipt Date: 20070212
  Transmission Date: 20070707
  Serious: Yes (Death)
  Sender: FDA-Public Use
  Company Number: PHFR2004IE02543

PATIENT
  Age: 41 Year
  Sex: Female

DRUGS (3)
  1. CLOZARIL [Suspect]
     Indication: SCHIZOPHRENIA
     Dosage: 550MG/DAY
     Route: 048
     Dates: start: 20031117, end: 20040527
  2. ESCITALOPRAM [Concomitant]
  3. KWELLS [Concomitant]

REACTIONS (4)
  - BODY MASS INDEX INCREASED [None]
  - DEEP VEIN THROMBOSIS [None]
  - OBESITY [None]
  - PULMONARY EMBOLISM [None]
